FAERS Safety Report 8197451-9 (Version None)
Quarter: 2012Q1

REPORT INFORMATION
  Report Type: 
  Country: None (occurrence: None)
  Receive Date: 20120309
  Receipt Date: 20120229
  Transmission Date: 20120608
  Serious: Yes (Other)
  Sender: FDA-Public Use
  Company Number: US-JNJFOC-20120300562

PATIENT
  Age: 70 Year
  Sex: Male

DRUGS (2)
  1. PERCOCET [Concomitant]
     Indication: PAIN
  2. XARELTO [Suspect]
     Indication: THROMBOSIS PROPHYLAXIS
     Route: 048

REACTIONS (1)
  - HAEMARTHROSIS [None]
